FAERS Safety Report 8305777-0 (Version None)
Quarter: 2012Q2

REPORT INFORMATION
  Report Type: 
  Country: None (occurrence: None)
  Receive Date: 20120423
  Receipt Date: 20120419
  Transmission Date: 20120825
  Serious: No
  Sender: FDA-Public Use
  Company Number: US-PFIZER INC-2012097767

PATIENT
  Sex: Female

DRUGS (2)
  1. ADVIL MIGRAINE LIQUI-GELS [Suspect]
     Indication: MIGRAINE
     Dosage: 400 MG, 2X/DAY, TWO CAPSULES A DAY
     Route: 048
     Dates: start: 20120418, end: 20120418
  2. TREXIMET [Concomitant]
     Dosage: UNK

REACTIONS (2)
  - OVERDOSE [None]
  - DRUG EFFECT DECREASED [None]
